FAERS Safety Report 8821247 (Version 2)
Quarter: 2012Q4

REPORT INFORMATION
  Report Type: 
  Country: US (occurrence: US)
  Receive Date: 20121002
  Receipt Date: 20121009
  Transmission Date: 20130627
  Serious: Yes (Other)
  Sender: FDA-Public Use
  Company Number: US-BAYER-2012-102635

PATIENT
  Age: 24 Year
  Sex: Female

DRUGS (1)
  1. MIRENA [Suspect]
     Indication: CONTRACEPTION
     Dosage: 20 mcg/24hr, UNK
     Route: 015
     Dates: start: 20120412, end: 20120925

REACTIONS (4)
  - Device expulsion [None]
  - Vaginal haemorrhage [None]
  - Vaginal haemorrhage [None]
  - Vaginal haemorrhage [None]
